FAERS Safety Report 7578248 (Version 5)
Quarter: 2013Q3

REPORT INFORMATION
  Report Type: Spontaneous
  Country: JP (occurrence: JP)
  Receive Date: 20100909
  Receipt Date: 20130821
  Transmission Date: 20140515
  Serious: Yes (Hospitalization, Other)
  Sender: FDA-Public Use
  Company Number: JP-PFIZER INC-2010109858

PATIENT
  Age: 73 Year
  Sex: Male
  Weight: 50.5 kg

DRUGS (10)
  1. MYCOBUTIN [Suspect]
     Indication: MYCOBACTERIAL INFECTION
     Dosage: UNK
  2. OMEPRAZOLE [Interacting]
     Dosage: UNK
     Route: 048
  3. CARBOCISTEINE [Interacting]
     Dosage: UNK
     Route: 048
  4. LOXOPROFEN [Interacting]
     Dosage: UNK
     Route: 048
  5. ETHAMBUTOL [Concomitant]
     Indication: ATYPICAL MYCOBACTERIAL INFECTION
     Dosage: UNK
     Dates: start: 2005
  6. ETHAMBUTOL [Concomitant]
     Indication: MYCOBACTERIAL INFECTION
  7. ISONIAZIDE [Concomitant]
     Indication: ATYPICAL MYCOBACTERIAL INFECTION
     Dosage: UNK
  8. ISONIAZIDE [Concomitant]
     Indication: MYCOBACTERIAL INFECTION
  9. AMIKACIN [Concomitant]
     Indication: ATYPICAL MYCOBACTERIAL INFECTION
     Dosage: UNK
  10. AMIKACIN [Concomitant]
     Indication: MYCOBACTERIAL INFECTION

REACTIONS (3)
  - Drug interaction [Unknown]
  - Interstitial lung disease [Recovered/Resolved]
  - Drug level increased [Unknown]
